FAERS Safety Report 12546829 (Version 1)
Quarter: 2016Q3

REPORT INFORMATION
  Report Type: Spontaneous
  Country: US (occurrence: US)
  Receive Date: 20160711
  Receipt Date: 20160711
  Transmission Date: 20161109
  Serious: No
  Sender: FDA-Public Use
  Company Number: US-IGI LABORATORIES, INC.-1054885

PATIENT

DRUGS (3)
  1. ZANTAC [Suspect]
     Active Substance: RANITIDINE HYDROCHLORIDE
     Indication: DYSPEPSIA
     Route: 065
  2. TUMS [Suspect]
     Active Substance: CALCIUM CARBONATE
     Route: 065
  3. SENSODYNE [Concomitant]
     Active Substance: POTASSIUM NITRATE\SODIUM FLUORIDE
     Route: 065
     Dates: start: 201509

REACTIONS (1)
  - Drug ineffective [Unknown]
